FAERS Safety Report 7045700-2 (Version None)
Quarter: 2010Q4

REPORT INFORMATION
  Report Type: 
  Country: None (occurrence: None)
  Receive Date: 20101014
  Receipt Date: 20101013
  Transmission Date: 20110411
  Serious: Yes (Hospitalization)
  Sender: FDA-Public Use
  Company Number: BR-BRISTOL-MYERS SQUIBB COMPANY-15320385

PATIENT
  Age: 46 Year
  Sex: Female
  Weight: 68 kg

DRUGS (23)
  1. ATAZANAVIR [Suspect]
     Indication: HIV INFECTION
     Dosage: LAST DOSE:01OCT2010
     Route: 048
     Dates: start: 20100218
  2. COMBIVIR [Suspect]
     Indication: HIV INFECTION
     Dosage: 1 DF=150/300MG,LAST DOSE:02OCT2010
     Route: 048
     Dates: start: 20091019
  3. SCOPOLAMINE [Concomitant]
     Indication: BACK PAIN
     Dates: start: 20101001, end: 20101001
  4. SCOPOLAMINE [Concomitant]
     Indication: ANXIETY
     Dates: start: 20101001, end: 20101001
  5. DIPIRONE [Concomitant]
     Indication: BACK PAIN
     Dates: start: 20101001, end: 20101001
  6. DIPIRONE [Concomitant]
     Indication: ANXIETY
     Dates: start: 20101001, end: 20101001
  7. METOCLOPRAMIDE [Concomitant]
     Indication: BACK PAIN
     Dates: start: 20101001, end: 20101001
  8. METOCLOPRAMIDE [Concomitant]
     Indication: ANXIETY
     Dates: start: 20101001, end: 20101001
  9. MORFIN [Concomitant]
     Indication: BACK PAIN
     Dates: start: 20101001, end: 20101001
  10. MORFIN [Concomitant]
     Indication: ANXIETY
     Dates: start: 20101001, end: 20101001
  11. DIAZEPAM [Concomitant]
     Indication: BACK PAIN
     Dates: start: 20101001, end: 20101001
  12. DIAZEPAM [Concomitant]
     Indication: ANXIETY
     Dates: start: 20101001, end: 20101001
  13. FENERGAN [Concomitant]
     Indication: BACK PAIN
     Dates: start: 20101001, end: 20101001
  14. FENERGAN [Concomitant]
     Indication: ANXIETY
     Dates: start: 20101001, end: 20101001
  15. KETOPROFEN [Concomitant]
     Indication: BACK PAIN
     Dates: start: 20101001, end: 20101001
  16. KETOPROFEN [Concomitant]
     Indication: ANXIETY
     Dates: start: 20101001, end: 20101001
  17. ORPHENADRINE CITRATE [Concomitant]
     Indication: BACK PAIN
     Dates: start: 20101002
  18. ORPHENADRINE CITRATE [Concomitant]
     Indication: ANXIETY
     Dates: start: 20101002
  19. CODEINE PHOSPHATE AND ACETAMINOPHEN [Concomitant]
     Indication: BACK PAIN
     Dates: start: 20101002
  20. CODEINE PHOSPHATE AND ACETAMINOPHEN [Concomitant]
     Indication: ANXIETY
     Dates: start: 20101002
  21. CIPROFLOXACIN [Concomitant]
     Indication: INFECTION
  22. CAFFEINE + DIPYRONE [Concomitant]
     Indication: BACK PAIN
     Dates: start: 20101002
  23. CAFFEINE + DIPYRONE [Concomitant]
     Indication: ANXIETY
     Dates: start: 20101002

REACTIONS (1)
  - RENAL COLIC [None]
